FAERS Safety Report 17770710 (Version 2)
Quarter: 2020Q3

REPORT INFORMATION
  Report Type: Spontaneous
  Country: US (occurrence: US)
  Receive Date: 20200512
  Receipt Date: 20200805
  Transmission Date: 20201102
  Serious: No
  Sender: FDA-Public Use
  Company Number: US-SA-2020SA120518

PATIENT

DRUGS (1)
  1. DUPIXENT [Suspect]
     Active Substance: DUPILUMAB
     Indication: DERMATITIS ATOPIC
     Dosage: 300 MG, QOW
     Route: 058
     Dates: start: 20191219

REACTIONS (5)
  - Eye pruritus [Unknown]
  - Therapeutic response decreased [Unknown]
  - Eye pain [Unknown]
  - Therapeutic response shortened [Unknown]
  - Eczema [Unknown]
